FAERS Safety Report 7051854-4 (Version None)
Quarter: 2010Q4

REPORT INFORMATION
  Report Type: 
  Country: None (occurrence: None)
  Receive Date: 20101019
  Receipt Date: 20101008
  Transmission Date: 20110411
  Serious: Yes (Other)
  Sender: FDA-Public Use
  Company Number: CA-JNJFOC-20101003416

PATIENT
  Sex: Female
  Weight: 55 kg

DRUGS (1)
  1. REMICADE [Suspect]
     Indication: CHORIORETINOPATHY
     Route: 042

REACTIONS (3)
  - CEREBRAL ISCHAEMIA [None]
  - DEMYELINATION [None]
  - GAIT DISTURBANCE [None]
